FAERS Safety Report 6374419-6 (Version None)
Quarter: 2009Q3

REPORT INFORMATION
  Report Type: 
  Country: None (occurrence: None)
  Receive Date: 20090915
  Receipt Date: 20090915
  Transmission Date: 20100115
  Serious: Yes (Hospitalization)
  Sender: FDA-Public Use
  Company Number: None

PATIENT
  Age: 56 Year
  Sex: Male
  Weight: 92.9 kg

DRUGS (2)
  1. ERLOTINIB [Suspect]
     Dosage: 150 MG EVERY DAY PO
     Route: 048
     Dates: start: 20090821, end: 20090906
  2. DICLOFENAC SODIUM [Suspect]
     Dosage: 50 MG BID PO
     Route: 048
     Dates: start: 20090904, end: 20090910

REACTIONS (1)
  - GASTRIC HAEMORRHAGE [None]
